FAERS Safety Report 13677403 (Version 1)
Quarter: 2017Q2

REPORT INFORMATION
  Report Type: Spontaneous
  Country: US (occurrence: US)
  Receive Date: 20170621
  Receipt Date: 20170621
  Transmission Date: 20170830
  Serious: Yes (Disabling)
  Sender: FDA-Public Use
  Company Number: None

PATIENT
  Age: 62 Year
  Sex: Female
  Weight: 67.5 kg

DRUGS (3)
  1. KLONOPIN [Suspect]
     Active Substance: CLONAZEPAM
     Indication: DEPRESSION
     Dosage: ?          QUANTITY:1 TABLET(S);?
     Route: 048
     Dates: start: 20130115, end: 20140817
  2. IBUPROFEN. [Concomitant]
     Active Substance: IBUPROFEN
  3. MULTI-VITAMINS [Concomitant]

REACTIONS (16)
  - Dizziness [None]
  - Palpitations [None]
  - Pruritus [None]
  - Burning sensation [None]
  - Anger [None]
  - Hyperacusis [None]
  - Depression [None]
  - Formication [None]
  - Insomnia [None]
  - Pain in extremity [None]
  - Vision blurred [None]
  - Disturbance in attention [None]
  - Paraesthesia [None]
  - Muscular weakness [None]
  - Skin disorder [None]
  - Alopecia [None]

NARRATIVE: CASE EVENT DATE: 20140817
